FAERS Safety Report 12788393 (Version 2)
Quarter: 2016Q3

REPORT INFORMATION
  Report Type: Spontaneous
  Country: DK (occurrence: DK)
  Receive Date: 20160928
  Receipt Date: 20160928
  Transmission Date: 20161109
  Serious: Yes (Other)
  Sender: FDA-Public Use
  Company Number: DK-CIPLA LTD.-2016DK18610

PATIENT

DRUGS (2)
  1. TERBINAFINE. [Suspect]
     Active Substance: TERBINAFINE
     Indication: KERATOSIS FOLLICULAR
     Dosage: UNK
     Route: 048
  2. TERBINAFINE. [Suspect]
     Active Substance: TERBINAFINE
     Dosage: 250 MG, DAILY, 2 ? 30-DAY COURSES
     Route: 048

REACTIONS (4)
  - Drug resistance [Unknown]
  - Treatment failure [Unknown]
  - Condition aggravated [Recovered/Resolved]
  - Body tinea [Recovered/Resolved]
